FAERS Safety Report 17463712 (Version 1)
Quarter: 2020Q1

REPORT INFORMATION
  Report Type: Report from Study
  Country: US (occurrence: US)
  Receive Date: 20200226
  Receipt Date: 20200226
  Transmission Date: 20200409
  Serious: No
  Sender: FDA-Public Use
  Company Number: US-DOVA PHARMACEUTICALS INC.-DOV-000381

PATIENT
  Age: 44 Year
  Sex: Male

DRUGS (1)
  1. DOPTELET [Suspect]
     Active Substance: AVATROMBOPAG MALEATE
     Indication: PRODUCT USED FOR UNKNOWN INDICATION
     Dosage: 60 MG, QD
     Route: 048

REACTIONS (5)
  - Haematemesis [Unknown]
  - Fluid retention [Unknown]
  - Pruritus [Unknown]
  - Haemoglobin decreased [Unknown]
  - Insomnia [Unknown]

NARRATIVE: CASE EVENT DATE: 20191208
